FAERS Safety Report 20944992 (Version 1)
Quarter: 2022Q2

REPORT INFORMATION
  Report Type: Spontaneous
  Country: US (occurrence: US)
  Receive Date: 20220610
  Receipt Date: 20220610
  Transmission Date: 20220721
  Serious: Yes (Other)
  Sender: FDA-Public Use
  Company Number: US-PFIZER INC-202200804494

PATIENT
  Age: 76 Year
  Sex: Female
  Weight: 83.01 kg

DRUGS (1)
  1. XELJANZ [Suspect]
     Active Substance: TOFACITINIB CITRATE
     Indication: Rheumatoid arthritis
     Dosage: 11 MG, DAILY
     Route: 048
     Dates: end: 202203

REACTIONS (5)
  - Blindness unilateral [Unknown]
  - Eye infection [Unknown]
  - Drug ineffective [Unknown]
  - Incorrect dose administered [Unknown]
  - Infection [Unknown]
